FAERS Safety Report 25153410 (Version 1)
Quarter: 2025Q2

REPORT INFORMATION
  Report Type: Spontaneous
  Country: CN (occurrence: CN)
  Receive Date: 20250403
  Receipt Date: 20250403
  Transmission Date: 20250717
  Serious: Yes (Disabling, Other)
  Sender: SANOFI AVENTIS
  Company Number: CN-SA-2025SA092974

PATIENT
  Age: 30 Year
  Sex: Female
  Weight: 69 kg

DRUGS (4)
  1. OXALIPLATIN [Suspect]
     Active Substance: OXALIPLATIN
     Indication: Rectal cancer
     Dosage: 200 MG, Q3W
     Route: 041
     Dates: start: 20240522, end: 2024
  2. OXALIPLATIN [Suspect]
     Active Substance: OXALIPLATIN
     Dosage: 150 MG, Q3W
     Route: 041
     Dates: start: 2024, end: 20241022
  3. CAPECITABINE [Suspect]
     Active Substance: CAPECITABINE
     Indication: Rectal cancer
     Dosage: 1500 MG, BID
     Route: 048
     Dates: start: 20240522, end: 20241104
  4. DEXTROSE [Concomitant]
     Active Substance: DEXTROSE MONOHYDRATE
     Indication: Vehicle solution use
     Dosage: 500 ML, Q3W
     Route: 041
     Dates: start: 20241022, end: 20241022

REACTIONS (4)
  - Liver injury [Unknown]
  - Deafness neurosensory [Not Recovered/Not Resolved]
  - Hypoacusis [Not Recovered/Not Resolved]
  - Condition aggravated [Not Recovered/Not Resolved]

NARRATIVE: CASE EVENT DATE: 20240101
